FAERS Safety Report 18743602 (Version 4)
Quarter: 2021Q1

REPORT INFORMATION
  Report Type: Report from Study
  Country: CA (occurrence: CA)
  Receive Date: 20210115
  Receipt Date: 20210330
  Transmission Date: 20210419
  Serious: Yes (Hospitalization, Other)
  Sender: FDA-Public Use
  Company Number: CA-JNJFOC-20210117565

PATIENT
  Age: 61 Year
  Sex: Female

DRUGS (2)
  1. REMICADE [Suspect]
     Active Substance: INFLIXIMAB
     Indication: COLITIS ULCERATIVE
     Dosage: ON OCT?2020 THE PATIENT RECEIVED LAST DOSE OF REMICADE
     Route: 042
  2. REMICADE [Suspect]
     Active Substance: INFLIXIMAB
     Dosage: REINDUCTION 1000 MG 0 ? 2 ? 6 THEN ONCE 6 WEEKS
     Route: 042

REACTIONS (4)
  - Pneumonia [Recovering/Resolving]
  - Erythema [Recovering/Resolving]
  - Septic shock [Recovering/Resolving]
  - Cellulitis [Recovering/Resolving]

NARRATIVE: CASE EVENT DATE: 20201231
